FAERS Safety Report 15542496 (Version 2)
Quarter: 2018Q4

REPORT INFORMATION
  Report Type: Report from Study
  Country: US (occurrence: US)
  Receive Date: 20181023
  Receipt Date: 20181102
  Transmission Date: 20190205
  Serious: Yes (Hospitalization, Other)
  Sender: FDA-Public Use
  Company Number: US-SA-2018SA289255

PATIENT
  Age: 80 Year
  Sex: Female

DRUGS (1)
  1. INSULIN GLARGINE [Suspect]
     Active Substance: INSULIN GLARGINE
     Indication: TYPE 2 DIABETES MELLITUS
     Dosage: 70 U, QD
     Route: 058

REACTIONS (9)
  - Weight increased [Not Recovered/Not Resolved]
  - Neoplasm malignant [Recovered/Resolved]
  - Gastric cancer [Recovered/Resolved]
  - Renal disorder [Unknown]
  - Liver disorder [Unknown]
  - Unevaluable event [Unknown]
  - Blood pressure increased [Unknown]
  - Gastrointestinal carcinoma [Recovered/Resolved]
  - Gait inability [Not Recovered/Not Resolved]

NARRATIVE: CASE EVENT DATE: 201804
